FAERS Safety Report 15790340 (Version 1)
Quarter: 2019Q1

REPORT INFORMATION
  Report Type: Spontaneous
  Country: US (occurrence: US)
  Receive Date: 20190104
  Receipt Date: 20190104
  Transmission Date: 20190417
  Serious: No
  Sender: FDA-Public Use
  Company Number: US-SA-2019SA001672

PATIENT
  Sex: Male

DRUGS (1)
  1. ROLAIDS ULTRA STRENGTH FRUIT [Suspect]
     Active Substance: CALCIUM CARBONATE\MAGNESIUM HYDROXIDE

REACTIONS (2)
  - Dyspepsia [Unknown]
  - Product quality issue [Unknown]
